FAERS Safety Report 12137952 (Version 1)
Quarter: 2016Q1

REPORT INFORMATION
  Report Type: Spontaneous
  Country: FR (occurrence: FR)
  Receive Date: 20160302
  Receipt Date: 20160302
  Transmission Date: 20160526
  Serious: Yes (Hospitalization)
  Sender: FDA-Public Use
  Company Number: FR-ASTRAZENECA-2016SE21331

PATIENT
  Age: 22129 Day
  Sex: Male

DRUGS (14)
  1. LERCAN [Suspect]
     Active Substance: LERCANIDIPINE
     Route: 048
     Dates: end: 20150309
  2. DOLIPRANE [Concomitant]
     Active Substance: ACETAMINOPHEN
  3. INEXIUM [Suspect]
     Active Substance: ESOMEPRAZOLE
     Route: 048
     Dates: end: 20150309
  4. ALPRESS SR [Suspect]
     Active Substance: PRAZOSIN HYDROCHLORIDE
     Route: 048
     Dates: end: 20150309
  5. APROVEL [Suspect]
     Active Substance: IRBESARTAN
     Route: 048
     Dates: end: 20150309
  6. LASILIX [Suspect]
     Active Substance: FUROSEMIDE
     Route: 048
     Dates: end: 20150309
  7. HYPERIUM [Suspect]
     Active Substance: RILMENIDINE PHOSPHATE
     Route: 048
     Dates: end: 20150309
  8. ARANESP [Concomitant]
     Active Substance: DARBEPOETIN ALFA
  9. CELLCEPT [Concomitant]
     Active Substance: MYCOPHENOLATE MOFETIL\MYCOPHENOLATE MOFETIL HYDROCHLORIDE
  10. COLCHICINE. [Suspect]
     Active Substance: COLCHICINE
     Route: 048
     Dates: start: 20150305, end: 20150309
  11. NEORAL [Concomitant]
     Active Substance: CYCLOSPORINE
  12. CORTANCYL [Concomitant]
     Active Substance: PREDNISONE
  13. KARDEGIC [Concomitant]
     Active Substance: ASPIRIN LYSINE
  14. TAHOR [Suspect]
     Active Substance: ATORVASTATIN CALCIUM
     Route: 048
     Dates: end: 20150309

REACTIONS (7)
  - General physical health deterioration [Recovered/Resolved]
  - Rhabdomyolysis [Recovered/Resolved]
  - Thrombocytopenia [Recovered/Resolved]
  - Arthralgia [Recovering/Resolving]
  - Hyperkalaemia [Recovered/Resolved]
  - Diarrhoea [Recovered/Resolved]
  - Burning sensation [Recovered/Resolved]

NARRATIVE: CASE EVENT DATE: 20150305
